FAERS Safety Report 5858955-4 (Version None)
Quarter: 2008Q3

REPORT INFORMATION
  Report Type: 
  Country: None (occurrence: None)
  Receive Date: 20080825
  Receipt Date: 20080509
  Transmission Date: 20090109
  Serious: No
  Sender: FDA-Public Use
  Company Number: ADE# 08-064

PATIENT
  Age: 72 Year
  Sex: Male
  Weight: 95.2554 kg

DRUGS (9)
  1. DIGOXIN [Suspect]
     Indication: CORONARY ARTERY BYPASS
     Dosage: 1 TABLET DAILY
     Dates: start: 20080508
  2. SYNTHROID [Concomitant]
  3. VITAMIN CAP [Concomitant]
  4. FISH OIL [Concomitant]
  5. ASPIRIN [Concomitant]
  6. SIMVASTATIN [Concomitant]
  7. PLAVIX [Concomitant]
  8. ZYRTEC [Concomitant]
  9. LISINOPRIL [Concomitant]

REACTIONS (3)
  - BACK PAIN [None]
  - CHEST DISCOMFORT [None]
  - DYSPNOEA [None]
